FAERS Safety Report 6249650-0 (Version None)
Quarter: 2009Q2

REPORT INFORMATION
  Report Type: 
  Country: None (occurrence: None)
  Receive Date: 20090629
  Receipt Date: 20090623
  Transmission Date: 20091009
  Serious: Yes (Hospitalization, Disabling)
  Sender: FDA-Public Use
  Company Number: GB-ABBOTT-09P-167-0581636-00

PATIENT
  Age: 55 Year
  Sex: Female
  Weight: 69.8 kg

DRUGS (7)
  1. HUMIRA [Suspect]
     Indication: RHEUMATOID ARTHRITIS
     Dates: start: 20070920, end: 20090507
  2. OMEPRAZOLE [Concomitant]
     Indication: DRUG USE FOR UNKNOWN INDICATION
     Dates: start: 20020101
  3. BENDROFLUMETHIAZIDE [Concomitant]
     Indication: DRUG USE FOR UNKNOWN INDICATION
     Dates: start: 20020101
  4. DILTIAZEM HCL [Concomitant]
     Indication: DIASTOLIC DYSFUNCTION
     Dates: start: 20020101
  5. NAPROXEN [Concomitant]
     Indication: RHEUMATOID ARTHRITIS
     Dates: start: 20010101
  6. AMLODIPINE [Concomitant]
     Indication: DRUG USE FOR UNKNOWN INDICATION
  7. METRONIDAZOLE [Concomitant]
     Indication: TOOTH ABSCESS

REACTIONS (2)
  - RENAL MASS [None]
  - URINARY TRACT INFECTION [None]
